APPROVED DRUG PRODUCT: LORAZEPAM
Active Ingredient: LORAZEPAM
Strength: 2MG
Dosage Form/Route: TABLET;ORAL
Application: A071141 | Product #001 | TE Code: AB
Applicant: SANDOZ INC
Approved: Apr 21, 1987 | RLD: No | RS: No | Type: RX